FAERS Safety Report 7178288-6 (Version None)
Quarter: 2010Q4

REPORT INFORMATION
  Report Type: 
  Country: None (occurrence: None)
  Receive Date: 20101220
  Receipt Date: 20101206
  Transmission Date: 20110411
  Serious: Yes (Other)
  Sender: FDA-Public Use
  Company Number: FR-PFIZER INC-2010165446

PATIENT
  Age: 43 Year
  Sex: Male

DRUGS (1)
  1. RHINADVIL [Suspect]
     Indication: RHINITIS
     Dosage: 5 TABLETS, 1X/DAY
     Dates: start: 20101101, end: 20101101

REACTIONS (2)
  - CHEST PAIN [None]
  - DYSPNOEA [None]
